FAERS Safety Report 16894279 (Version 1)
Quarter: 2019Q4

REPORT INFORMATION
  Report Type: Report from Study
  Country: US (occurrence: US)
  Receive Date: 20191008
  Receipt Date: 20191008
  Transmission Date: 20200122
  Serious: Yes (Death)
  Sender: FDA-Public Use
  Company Number: US-TAIHO ONCOLOGY  INC-EU-2019-03259

PATIENT
  Age: 63 Year
  Sex: Male
  Weight: 91.71 kg

DRUGS (4)
  1. VITAMIN B-6 [Concomitant]
     Active Substance: PYRIDOXINE
  2. LONSURF [Suspect]
     Active Substance: TIPIRACIL HYDROCHLORIDE\TRIFLURIDINE
     Indication: COLON CANCER
     Dosage: ON DAYS 1 THROUGH 5 AND 8 THROUGH 12 OF EACH 28 DAY CYCLE
     Route: 048
     Dates: start: 201908
  3. LORAZEPAM. [Concomitant]
     Active Substance: LORAZEPAM
  4. STOOL SOFTENER (DOCUSATE) [Concomitant]
     Active Substance: DOCUSATE

REACTIONS (1)
  - Death [Fatal]

NARRATIVE: CASE EVENT DATE: 20190903
